FAERS Safety Report 7374810-5 (Version None)
Quarter: 2011Q1

REPORT INFORMATION
  Report Type: 
  Country: None (occurrence: None)
  Receive Date: 20110325
  Receipt Date: 20101221
  Transmission Date: 20110831
  Serious: Yes (Other)
  Sender: FDA-Public Use
  Company Number: US-MYLANLABS-2010S1023421

PATIENT
  Sex: Male

DRUGS (2)
  1. FENTANYL-100 [Suspect]
     Indication: BACK PAIN
     Dosage: CHANGED Q72H
     Route: 062
     Dates: start: 20101217, end: 20101220
  2. OXYCODONE [Concomitant]
     Indication: PAIN

REACTIONS (4)
  - HEADACHE [None]
  - DRUG INEFFECTIVE [None]
  - BACK PAIN [None]
  - NAUSEA [None]
